FAERS Safety Report 8975540 (Version 1)
Quarter: 2012Q4

REPORT INFORMATION
  Report Type: 
  Country: US (occurrence: US)
  Receive Date: 20121219
  Receipt Date: 20121219
  Transmission Date: 20130627
  Serious: No
  Sender: FDA-Public Use
  Company Number: US-AMGEN-USASP2012068189

PATIENT
  Age: 74 Year
  Sex: Female
  Weight: 51.25 kg

DRUGS (1)
  1. PROLIA [Suspect]
     Indication: OSTEOPOROSIS POSTMENOPAUSAL
     Dosage: 1 mg, q6mo
     Route: 058
     Dates: start: 20121009

REACTIONS (2)
  - Rash [Recovered/Resolved]
  - Adverse drug reaction [Unknown]
